FAERS Safety Report 20358036 (Version 1)
Quarter: 2022Q1

REPORT INFORMATION
  Report Type: Spontaneous
  Country: US (occurrence: US)
  Receive Date: 20220120
  Receipt Date: 20220120
  Transmission Date: 20220424
  Serious: No
  Sender: FDA-Public Use
  Company Number: US-NOVOPROD-856606

PATIENT
  Sex: Female

DRUGS (1)
  1. OZEMPIC [Suspect]
     Active Substance: SEMAGLUTIDE
     Indication: Product used for unknown indication
     Dosage: TAKE 0.25 FOR 2 WEEKS THAN GO TO 0.5 MG ONCE A WEEK
     Route: 058

REACTIONS (6)
  - Headache [Not Recovered/Not Resolved]
  - Ill-defined disorder [Unknown]
  - Condition aggravated [Unknown]
  - Dry mouth [Unknown]
  - Dizziness [Not Recovered/Not Resolved]
  - Injection site erythema [Recovered/Resolved]
